FAERS Safety Report 19180237 (Version 1)
Quarter: 2021Q2

REPORT INFORMATION
  Report Type: Spontaneous
  Country: US (occurrence: US)
  Receive Date: 20210426
  Receipt Date: 20210426
  Transmission Date: 20210717
  Serious: Yes (Other)
  Sender: FDA-Public Use
  Company Number: None

PATIENT
  Age: 86 Year
  Sex: Female

DRUGS (16)
  1. ASPIRIN 81MG [Concomitant]
     Active Substance: ASPIRIN
  2. METOPROLOL TARTRATE 25MG [Concomitant]
     Active Substance: METOPROLOL TARTRATE
  3. MULTIVITAMIN [Concomitant]
     Active Substance: VITAMINS
  4. ASCORBIC ACID 500MG [Concomitant]
  5. FISH OIL 1000MG [Concomitant]
  6. IBUPROFEN 400MG [Concomitant]
     Active Substance: IBUPROFEN
  7. SIMVASTATIN 20MG [Concomitant]
     Active Substance: SIMVASTATIN
  8. IBRANCE [Suspect]
     Active Substance: PALBOCICLIB
     Indication: BREAST CANCER
     Dosage: ?          OTHER FREQUENCY:QDX21 DAYS, 7OFF;?
     Route: 048
     Dates: start: 20190628, end: 20210426
  9. VITAMIN C [Concomitant]
     Active Substance: ASCORBIC ACID
  10. HYDROCHLOROTHIAZIDE 12.5MG [Concomitant]
     Active Substance: HYDROCHLOROTHIAZIDE
  11. LIDOCAINE 5% [Concomitant]
     Active Substance: LIDOCAINE
  12. ROXICODONE 5MG [Concomitant]
  13. LETROZOLE 2.5MG [Concomitant]
     Active Substance: LETROZOLE
  14. MAGNESIUM OXIDE 400MG [Concomitant]
     Active Substance: MAGNESIUM OXIDE
  15. ACETAMINOPHEN 325MG [Concomitant]
  16. LISINOPRIL. [Concomitant]
     Active Substance: LISINOPRIL

REACTIONS (1)
  - Disease progression [None]

NARRATIVE: CASE EVENT DATE: 20210426
